FAERS Safety Report 9955723 (Version 1)
Quarter: 2014Q1

REPORT INFORMATION
  Report Type: Report from Study
  Country: US (occurrence: US)
  Receive Date: 20140304
  Receipt Date: 20140304
  Transmission Date: 20141002
  Serious: No
  Sender: FDA-Public Use
  Company Number: US-ABBVIE-13P-163-1087114-00

PATIENT
  Age: 40 Year
  Sex: Female

DRUGS (7)
  1. HUMIRA [Suspect]
     Indication: CROHN^S DISEASE
     Dates: start: 20121207
  2. ASACOL [Concomitant]
     Indication: CROHN^S DISEASE
     Dosage: 2400MG IN AM AND 2400MG IN PM
     Route: 048
  3. ZOFRAN [Concomitant]
     Indication: NAUSEA
     Route: 048
  4. ULTRAM [Concomitant]
     Indication: HEADACHE
  5. ULTRAM [Concomitant]
     Indication: ARTHRALGIA
  6. TYLENOL [Concomitant]
     Indication: HEADACHE
     Route: 048
  7. TYLENOL [Concomitant]
     Indication: ARTHRALGIA

REACTIONS (1)
  - Rash [Not Recovered/Not Resolved]
